FAERS Safety Report 9224335 (Version 1)
Quarter: 2013Q2

REPORT INFORMATION
  Report Type: Report from Study
  Country: FR (occurrence: FR)
  Receive Date: 20130411
  Receipt Date: 20130411
  Transmission Date: 20140414
  Serious: Yes (Other)
  Sender: FDA-Public Use
  Company Number: PHHY2013FR022525

PATIENT
  Sex: Male
  Weight: 72 kg

DRUGS (3)
  1. LMF237 [Suspect]
     Indication: TYPE 2 DIABETES MELLITUS
     Dosage: BID
     Dates: start: 20100417
  2. VOLTARENE [Suspect]
     Indication: CARPAL TUNNEL SYNDROME
     Dosage: 75 MG, QD
     Dates: start: 20110102
  3. EXFORGE [Concomitant]
     Dosage: 1 DF, QD

REACTIONS (2)
  - Hypertension [Recovered/Resolved]
  - Transaminases increased [Recovered/Resolved]
